FAERS Safety Report 9201837 (Version 1)
Quarter: 2013Q2

REPORT INFORMATION
  Report Type: Spontaneous
  Country: FR (occurrence: FR)
  Receive Date: 20130401
  Receipt Date: 20130401
  Transmission Date: 20140414
  Serious: Yes (Life-Threatening)
  Sender: FDA-Public Use
  Company Number: FR-ASTRAZENECA-2013SE20607

PATIENT
  Age: 0 Day
  Sex: Male
  Weight: 3.7 kg

DRUGS (1)
  1. NAROPEINE [Suspect]
     Indication: ANAESTHETIC COMPLICATION
     Dosage: 10 MG / ML
     Route: 064
     Dates: start: 20111127, end: 20111127

REACTIONS (1)
  - Bradycardia foetal [Recovered/Resolved]
